FAERS Safety Report 24648354 (Version 2)
Quarter: 2025Q2

REPORT INFORMATION
  Report Type: Report from Study
  Country: JP (occurrence: JP)
  Receive Date: 20241121
  Receipt Date: 20250407
  Transmission Date: 20250717
  Serious: Yes (Death)
  Sender: SHIONOGI
  Company Number: JP-shionogi-202400001247

PATIENT
  Age: 65 Year
  Sex: Male

DRUGS (1)
  1. CEFIDEROCOL [Suspect]
     Active Substance: CEFIDEROCOL
     Indication: Bacterial infection
     Route: 041
     Dates: start: 20240913

REACTIONS (3)
  - Death [Fatal]
  - Rash [Not Recovered/Not Resolved]
  - Hepatic function abnormal [Unknown]

NARRATIVE: CASE EVENT DATE: 20240101
